FAERS Safety Report 12177684 (Version 2)
Quarter: 2016Q1

REPORT INFORMATION
  Report Type: Spontaneous
  Country: US (occurrence: US)
  Receive Date: 20160315
  Receipt Date: 20160322
  Transmission Date: 20160526
  Serious: Yes (Hospitalization)
  Sender: FDA-Public Use
  Company Number: US-HORIZON-RAV-0049-2016

PATIENT
  Sex: Male

DRUGS (2)
  1. RAVICTI [Suspect]
     Active Substance: GLYCEROL PHENYLBUTYRATE
     Indication: ORNITHINE TRANSCARBAMOYLASE DEFICIENCY
     Dosage: 3 ML THREE TIMES DAILY
     Dates: start: 201512
  2. ARGININE [Concomitant]
     Active Substance: ARGININE
     Dosage: DAILY

REACTIONS (1)
  - Hyperammonaemic crisis [Recovered/Resolved]

NARRATIVE: CASE EVENT DATE: 201602
